FAERS Safety Report 22050351 (Version 1)
Quarter: 2023Q1

REPORT INFORMATION
  Report Type: Spontaneous
  Country: US (occurrence: US)
  Receive Date: 20230301
  Receipt Date: 20230301
  Transmission Date: 20230417
  Serious: No
  Sender: FDA-Public Use
  Company Number: US-TRIS PHARMA, INC.-23US010747

PATIENT

DRUGS (2)
  1. ACETAMINOPHEN\HYDROCODONE BITARTRATE [Suspect]
     Active Substance: ACETAMINOPHEN\HYDROCODONE BITARTRATE
     Indication: Chest pain
     Dosage: TOOK 4 TO 5 (CUT IN HALF) A DAY, WHICH IS 20- 25MG(HYDROCODONE)
     Route: 048
  2. ALECTINIB [Concomitant]
     Active Substance: ALECTINIB
     Indication: Lung neoplasm malignant
     Dosage: 450 MILLIGRAM, BID
     Dates: start: 202008

REACTIONS (2)
  - Wrong technique in product usage process [Unknown]
  - Constipation [Recovered/Resolved]
